FAERS Safety Report 8058801-7 (Version None)
Quarter: 2012Q1

REPORT INFORMATION
  Report Type: 
  Country: None (occurrence: None)
  Receive Date: 20120120
  Receipt Date: 20111220
  Transmission Date: 20120608
  Serious: Yes (Death, Hospitalization)
  Sender: FDA-Public Use
  Company Number: US-BRISTOL-MYERS SQUIBB COMPANY-16000119

PATIENT
  Age: 45 Year
  Sex: Male
  Weight: 96 kg

DRUGS (19)
  1. PREDNISONE [Concomitant]
     Route: 048
  2. PROCHLORPERAZINE [Concomitant]
     Route: 048
  3. INSULIN [Concomitant]
  4. VITAMIN K TAB [Concomitant]
  5. VASOPRESSIN [Concomitant]
  6. YERVOY [Suspect]
     Indication: METASTATIC MALIGNANT MELANOMA
     Dosage: 246MG 2 CYCLE
     Route: 042
     Dates: start: 20110708, end: 20110729
  7. METHYLPREDNISOLONE [Concomitant]
     Route: 042
  8. FENTANYL [Concomitant]
  9. ONDANSETRON HCL [Concomitant]
     Route: 048
  10. LORAZEPAM [Concomitant]
  11. LASIX [Concomitant]
     Dosage: 1 TAB OF FUROSEMIDE 40MG TABS
     Route: 048
  12. MYCOPHENOLATE MOFETIL [Concomitant]
  13. DOBUTAMINE HCL [Concomitant]
  14. PROTONIX [Concomitant]
     Route: 042
  15. ZOSYN [Concomitant]
     Route: 042
  16. SYNTHROID [Concomitant]
     Dosage: 2 TABS OF LEVOTHYROXINE 112 MCG TABS
     Route: 048
  17. MYCOPHENOLATE MOFETIL (CELLCEPT) [Concomitant]
  18. ILOTYCIN [Concomitant]
  19. LEVOPHED [Concomitant]

REACTIONS (8)
  - RENAL FAILURE [None]
  - HEPATIC FAILURE [None]
  - CARDIOMYOPATHY [None]
  - CARDIAC FAILURE CONGESTIVE [None]
  - MULTI-ORGAN FAILURE [None]
  - HEPATITIS ACUTE [None]
  - RESPIRATORY FAILURE [None]
  - HAEMOPTYSIS [None]
